FAERS Safety Report 5408373-8 (Version None)
Quarter: 2007Q3

REPORT INFORMATION
  Report Type: 
  Country: None (occurrence: None)
  Receive Date: 20070806
  Receipt Date: 20070806
  Transmission Date: 20080115
  Serious: Yes (Hospitalization)
  Sender: FDA-Public Use
  Company Number: None

PATIENT
  Age: 75 Year
  Sex: Male

DRUGS (1)
  1. MEPERIDINE HCL [Suspect]
     Indication: PAIN
     Dosage: 12.5MG ONCE IV
     Route: 042
     Dates: start: 20070519, end: 20070519

REACTIONS (3)
  - HYPOTENSION [None]
  - RESPIRATORY DEPRESSION [None]
  - TACHYCARDIA [None]
